FAERS Safety Report 22156713 (Version 1)
Quarter: 2023Q1

REPORT INFORMATION
  Report Type: Spontaneous
  Country: US (occurrence: US)
  Receive Date: 20230330
  Receipt Date: 20230330
  Transmission Date: 20230418
  Serious: No
  Sender: FDA-Public Use
  Company Number: US-FreseniusKabi-FK202303612

PATIENT
  Sex: Female

DRUGS (3)
  1. DIPRIVAN [Suspect]
     Active Substance: PROPOFOL
     Indication: Sedation
     Dosage: GAVE 200 MG, THEN GAVE AN ADDITIONAL 200 MG, FOR A TOTAL DOSE OF 400 MG
     Route: 042
  2. DIPRIVAN [Suspect]
     Active Substance: PROPOFOL
     Dosage: GAVE 200 MG, THEN GAVE AN ADDITIONAL 200 MG, FOR A TOTAL DOSE OF 400 MG
     Route: 042
  3. DIPRIVAN [Suspect]
     Active Substance: PROPOFOL
     Dosage: GAVE 200 MG, THEN GAVE AN ADDITIONAL 200 MG, FOR A TOTAL DOSE OF 400 MG
     Route: 042

REACTIONS (1)
  - Therapeutic product effect decreased [None]
